FAERS Safety Report 13302393 (Version 2)
Quarter: 2017Q1

REPORT INFORMATION
  Report Type: Spontaneous
  Country: DE (occurrence: DE)
  Receive Date: 20170307
  Receipt Date: 20170322
  Transmission Date: 20170428
  Serious: Yes (Other)
  Sender: FDA-Public Use
  Company Number: DE-TEVA-743421GER

PATIENT
  Age: 40 Year
  Sex: Female

DRUGS (2)
  1. DOXY-M-RATIOPHARM 100 MG TABLETTEN [Suspect]
     Active Substance: DOXYCYCLINE
     Indication: LARYNGITIS
     Dosage: 100 MILLIGRAM DAILY;
     Route: 048
     Dates: start: 201702, end: 201702
  2. DOXY-M-RATIOPHARM 100 MG TABLETTEN [Suspect]
     Active Substance: DOXYCYCLINE
     Indication: SINUSITIS

REACTIONS (2)
  - Diarrhoea haemorrhagic [Unknown]
  - Drug hypersensitivity [Unknown]

NARRATIVE: CASE EVENT DATE: 20170221
